FAERS Safety Report 6426810-7 (Version None)
Quarter: 2009Q4

REPORT INFORMATION
  Report Type: 
  Country: None (occurrence: None)
  Receive Date: 20091104
  Receipt Date: 20091026
  Transmission Date: 20100525
  Serious: Yes (Hospitalization)
  Sender: FDA-Public Use
  Company Number: JP-JNJFOC-20091008761

PATIENT
  Sex: Female
  Weight: 67 kg

DRUGS (3)
  1. DOXORUBICIN HCL [Suspect]
     Dosage: CYCLE 2
     Route: 042
     Dates: start: 20090610, end: 20090708
  2. DOXORUBICIN HCL [Suspect]
     Indication: OVARIAN CANCER RECURRENT
     Dosage: CYCLE 1
     Route: 042
     Dates: start: 20090610, end: 20090708
  3. STEROIDS NOS [Concomitant]

REACTIONS (2)
  - DERMATITIS [None]
  - STOMATITIS [None]
